FAERS Safety Report 7498451-4 (Version None)
Quarter: 2011Q2

REPORT INFORMATION
  Report Type: 
  Country: None (occurrence: None)
  Receive Date: 20110524
  Receipt Date: 20090422
  Transmission Date: 20111010
  Serious: No
  Sender: FDA-Public Use
  Company Number: 2009BI012438

PATIENT
  Sex: Male

DRUGS (3)
  1. TYSABRI [Suspect]
     Route: 042
     Dates: start: 20080515, end: 20080515
  2. TYSABRI [Suspect]
     Indication: MULTIPLE SCLEROSIS
     Route: 042
     Dates: start: 20060801, end: 20071201
  3. TYSABRI [Suspect]
     Route: 042
     Dates: start: 20080911

REACTIONS (6)
  - ANGIOPLASTY [None]
  - MULTIPLE SCLEROSIS [None]
  - ASTHENIA [None]
  - LOSS OF CONTROL OF LEGS [None]
  - BALANCE DISORDER [None]
  - GAIT DISTURBANCE [None]
